FAERS Safety Report 8842414 (Version 1)
Quarter: 2012Q4

REPORT INFORMATION
  Report Type: 
  Country: DK (occurrence: CA)
  Receive Date: 20121016
  Receipt Date: 20121016
  Transmission Date: 20130627
  Serious: Yes (Other)
  Sender: FDA-Public Use
  Company Number: CA-FRI-1000039404

PATIENT
  Age: 41 Year
  Sex: Female

DRUGS (11)
  1. ESCITALOPRAM [Suspect]
  2. DICLOFENAC [Suspect]
  3. GILENYA [Suspect]
     Dosage: 0.5 mg
     Route: 048
  4. AMITRIPTYLINE [Concomitant]
  5. BACLOFEN [Concomitant]
  6. CLONAZEPAM [Concomitant]
  7. GABAPENTIN [Concomitant]
  8. NEXIUM [Concomitant]
  9. TYLENOL EXTRA-STRENGTH EZ [Concomitant]
  10. VESICARE [Concomitant]
  11. WATER PILLS [Concomitant]

REACTIONS (14)
  - Abdominal discomfort [Not Recovered/Not Resolved]
  - Abnormal sensation in eye [Not Recovered/Not Resolved]
  - Condition aggravated [Not Recovered/Not Resolved]
  - Dyspnoea exertional [Not Recovered/Not Resolved]
  - Drug interaction [Not Recovered/Not Resolved]
  - Eye swelling [Not Recovered/Not Resolved]
  - Headache [Not Recovered/Not Resolved]
  - Lymphocyte count decreased [Not Recovered/Not Resolved]
  - Multiple sclerosis relapse [Not Recovered/Not Resolved]
  - Nausea [Not Recovered/Not Resolved]
  - Neutrophil count decreased [Not Recovered/Not Resolved]
  - Pyrexia [Not Recovered/Not Resolved]
  - Vision blurred [Not Recovered/Not Resolved]
  - White blood cell count decreased [Not Recovered/Not Resolved]
